FAERS Safety Report 9255120 (Version 2)
Quarter: 2013Q2

REPORT INFORMATION
  Report Type: Spontaneous
  Country: AU (occurrence: None)
  Receive Date: 20130422
  Receipt Date: 20130522
  Transmission Date: 20140414
  Serious: Yes (Hospitalization)
  Sender: FDA-Public Use
  Company Number: ACO_35581_2013

PATIENT
  Age: 42 Year
  Sex: Female

DRUGS (8)
  1. FAMPRIDINE-SR [Suspect]
     Indication: MULTIPLE SCLEROSIS
     Route: 048
     Dates: start: 20120628
  2. GILENYA (FINGOLIMOD HYDROCHLORIDE) [Concomitant]
  3. VITAMIN B (VITAMIN B COMPLEX) [Concomitant]
  4. VITAMIN C [Concomitant]
  5. DOXYCYCLINE (DOXYCYCLINE HYDROCHLORIDE) [Concomitant]
  6. ROXITHROMYCIN (ROCITHROMYCIN) [Concomitant]
  7. FLAGYL (METRONIDAZOLE BENZOATE) [Concomitant]
  8. KARBEZIDE (HYDROCHLOROTHIAZIDE, IRBESARTAN) [Concomitant]

REACTIONS (1)
  - Ovarian cyst ruptured [None]
